FAERS Safety Report 4844799-9 (Version None)
Quarter: 2005Q4

REPORT INFORMATION
  Report Type: 
  Country: None (occurrence: None)
  Receive Date: 20051205
  Receipt Date: 20051129
  Transmission Date: 20060501
  Serious: Yes (Other)
  Sender: FDA-Public Use
  Company Number: ES-BRISTOL-MYERS SQUIBB COMPANY-13198346

PATIENT
  Age: 42 Year
  Sex: Male

DRUGS (4)
  1. STAVUDINE [Suspect]
     Indication: HIV INFECTION
     Dates: start: 20011001, end: 20030301
  2. EFAVIRENZ [Suspect]
     Indication: HIV INFECTION
     Dates: start: 20001101
  3. LAMIVUDINE [Suspect]
     Indication: HIV INFECTION
     Dates: start: 19980601
  4. INTERFERON ALFA-2B + RIBAVIRIN [Concomitant]
     Indication: HEPATITIS C
     Dates: start: 20020101, end: 20021201

REACTIONS (2)
  - ENOPHTHALMOS [None]
  - LIPOATROPHY [None]
